FAERS Safety Report 23169825 (Version 5)
Quarter: 2024Q1

REPORT INFORMATION
  Report Type: Spontaneous
  Country: US (occurrence: US)
  Receive Date: 20231110
  Receipt Date: 20240322
  Transmission Date: 20240410
  Serious: Yes (Other)
  Sender: FDA-Public Use
  Company Number: US-Blueprint Medicines Corporation-1665

PATIENT
  Sex: Female

DRUGS (3)
  1. AYVAKIT [Suspect]
     Active Substance: AVAPRITINIB
     Indication: Polycythaemia vera
     Route: 065
     Dates: start: 20230721
  2. AYVAKIT [Suspect]
     Active Substance: AVAPRITINIB
     Route: 065
     Dates: start: 20230721
  3. AYVAKIT [Suspect]
     Active Substance: AVAPRITINIB
     Route: 065

REACTIONS (9)
  - Type 1 diabetes mellitus [Unknown]
  - Unevaluable event [Unknown]
  - Haematocrit increased [Unknown]
  - Red blood cell count increased [Unknown]
  - Tryptase [Unknown]
  - Laboratory test abnormal [Unknown]
  - Off label use [Unknown]
  - Product physical issue [Unknown]
  - Drug-device incompatibility [Unknown]
